FAERS Safety Report 12764032 (Version 1)
Quarter: 2016Q3

REPORT INFORMATION
  Report Type: Spontaneous
  Country: AU (occurrence: AU)
  Receive Date: 20160920
  Receipt Date: 20160920
  Transmission Date: 20161109
  Serious: Yes (Other)
  Sender: FDA-Public Use
  Company Number: AU-ASTRAZENECA-2016SE98208

PATIENT
  Age: 926 Month
  Sex: Male

DRUGS (4)
  1. BYDUREON [Suspect]
     Active Substance: EXENATIDE
     Indication: TYPE 2 DIABETES MELLITUS
     Dosage: 2 MG
     Route: 065
     Dates: start: 20160907
  2. FORXIGA [Concomitant]
     Active Substance: DAPAGLIFLOZIN
  3. INSULIN [Concomitant]
     Active Substance: INSULIN NOS
     Dosage: 25 UNITS
     Dates: end: 201609
  4. METFORMIN [Concomitant]
     Active Substance: METFORMIN HYDROCHLORIDE
     Dosage: 1MG - 2 AT NIGHT, FOR 5-6 YEARS

REACTIONS (5)
  - Injection site haemorrhage [Unknown]
  - Nausea [Recovered/Resolved]
  - Blood glucose increased [Unknown]
  - Circumstance or information capable of leading to medication error [Unknown]
  - Diarrhoea [Recovered/Resolved]

NARRATIVE: CASE EVENT DATE: 201609
